FAERS Safety Report 23081679 (Version 2)
Quarter: 2023Q4

REPORT INFORMATION
  Report Type: Other
  Country: US (occurrence: None)
  Receive Date: 20231019
  Receipt Date: 20231129
  Transmission Date: 20240109
  Serious: Yes (Other)
  Sender: FDA-Public Use
  Company Number: US-ROCHE-3208507

PATIENT
  Age: 54 Year
  Sex: Female
  Weight: 71.732 kg

DRUGS (8)
  1. OCREVUS [Suspect]
     Active Substance: OCRELIZUMAB
     Indication: Relapsing multiple sclerosis
     Dosage: THEN 600MG EVERY 6 MONTHS
     Route: 042
     Dates: start: 20221025
  2. OCREVUS [Suspect]
     Active Substance: OCRELIZUMAB
     Dosage: DATE OF TREATMENT;08/NOV/2022
     Route: 042
     Dates: start: 2022
  3. BUSPIRONE [Concomitant]
     Active Substance: BUSPIRONE HYDROCHLORIDE
  4. ESCITALOPRAM [Concomitant]
     Active Substance: ESCITALOPRAM OXALATE
  5. LISINOPRIL [Concomitant]
     Active Substance: LISINOPRIL
  6. MACROBID [Concomitant]
     Active Substance: NITROFURANTOIN\NITROFURANTOIN MONOHYDRATE
  7. PEPCID [Concomitant]
     Active Substance: FAMOTIDINE
  8. BACLOFEN [Concomitant]
     Active Substance: BACLOFEN

REACTIONS (6)
  - Blood glucose increased [Recovered/Resolved]
  - Headache [Recovered/Resolved]
  - Bone density decreased [Not Recovered/Not Resolved]
  - Weight decreased [Recovered/Resolved]
  - Nephrolithiasis [Recovering/Resolving]
  - Cystitis [Recovered/Resolved]
